FAERS Safety Report 10196730 (Version 2)
Quarter: 2014Q2

REPORT INFORMATION
  Report Type: Spontaneous
  Country: JP (occurrence: JP)
  Receive Date: 20140527
  Receipt Date: 20140623
  Transmission Date: 20141212
  Serious: Yes (Life-Threatening, Disabling)
  Sender: FDA-Public Use
  Company Number: JP-ASTRAZENECA-2014SE34675

PATIENT
  Age: 63 Year
  Sex: Male
  Weight: 76 kg

DRUGS (17)
  1. XYLOCAINE POLYAMP [Suspect]
     Indication: LOCAL ANAESTHESIA
     Dates: start: 20120131, end: 20120131
  2. XYLOCAINE POLYAMP [Suspect]
     Indication: LOCAL ANAESTHESIA
     Dosage: DOSE UNKNOWN
     Route: 023
     Dates: start: 20120615, end: 20120615
  3. XYLOCAINE POLYAMP [Suspect]
     Indication: LOCAL ANAESTHESIA
     Dosage: DOSE UNKNOWN
     Route: 058
     Dates: start: 20120615, end: 20120615
  4. DIPRIVAN [Suspect]
     Indication: SEDATION
     Dates: start: 20120131, end: 20120131
  5. DIPRIVAN [Suspect]
     Indication: SEDATION
     Route: 042
     Dates: start: 20120615, end: 20120615
  6. SOLITA-T NO.1 [Concomitant]
     Route: 041
     Dates: start: 20120615
  7. ZETIA [Concomitant]
     Route: 065
  8. AMLODIN OD [Concomitant]
     Dosage: EVERY DAY
     Route: 065
  9. OMEPRAZON [Concomitant]
     Route: 065
  10. MICARDIS [Concomitant]
     Route: 065
  11. BAYASPIRIN [Concomitant]
     Route: 065
  12. NICORANDIS [Concomitant]
     Route: 065
  13. LIPITOR [Concomitant]
     Route: 065
  14. LENDORMIN [Concomitant]
     Route: 065
  15. DEPAS [Concomitant]
     Route: 065
  16. BENZALIN [Concomitant]
     Route: 065
  17. XYZAL [Concomitant]
     Route: 065

REACTIONS (3)
  - Hypoxic-ischaemic encephalopathy [Not Recovered/Not Resolved]
  - Anaphylactic shock [Recovered/Resolved with Sequelae]
  - Cardio-respiratory arrest [Recovered/Resolved]
